FAERS Safety Report 5168055-7 (Version None)
Quarter: 2006Q4

REPORT INFORMATION
  Report Type: 
  Country: None (occurrence: None)
  Receive Date: 20061208
  Receipt Date: 20060605
  Transmission Date: 20070319
  Serious: No
  Sender: FDA-Public Use
  Company Number: US-GLAXOSMITHKLINE-A0607910A

PATIENT
  Age: 69 Year
  Sex: Female

DRUGS (6)
  1. AVANDAMET [Suspect]
     Dosage: 2TAB TWICE PER DAY
     Route: 048
  2. CYMBALTA [Concomitant]
  3. CELEBREX [Concomitant]
  4. SYNTHROID [Concomitant]
     Dosage: 112MCG PER DAY
  5. GLUCOVANCE [Concomitant]
  6. PROPOXYPHENE NAPSYLATE AND ACETAMINOPHEN [Concomitant]

REACTIONS (3)
  - BLOOD GLUCOSE INCREASED [None]
  - DRUG INEFFECTIVE [None]
  - PHARMACEUTICAL PRODUCT COMPLAINT [None]
